FAERS Safety Report 7958344-2 (Version None)
Quarter: 2011Q4

REPORT INFORMATION
  Report Type: 
  Country: None (occurrence: None)
  Receive Date: 20111205
  Receipt Date: 20111201
  Transmission Date: 20120403
  Serious: Yes (Hospitalization)
  Sender: FDA-Public Use
  Company Number: US-B.I. PHARMACEUTICALS,INC./RIDGEFIELD-2011-BP-27406PF

PATIENT
  Sex: Male

DRUGS (2)
  1. ZOLOFT [Suspect]
     Route: 065
  2. SPIRIVA [Suspect]
     Route: 065

REACTIONS (1)
  - AGGRESSION [None]
